FAERS Safety Report 9107970 (Version 2)
Quarter: 2013Q1

REPORT INFORMATION
  Report Type: Spontaneous
  Country: BR (occurrence: BR)
  Receive Date: 20130221
  Receipt Date: 20130325
  Transmission Date: 20140127
  Serious: Yes (Death, Hospitalization, Other)
  Sender: FDA-Public Use
  Company Number: BR-PFIZER INC-2013064820

PATIENT
  Sex: Male
  Weight: 60 kg

DRUGS (4)
  1. SUTENT [Suspect]
     Indication: RENAL CANCER
     Dosage: 50 MG, 1X/DAY, CYCLIC
     Route: 048
     Dates: start: 20130118
  2. SELOKEN [Concomitant]
     Dosage: 300 MG, 1X/DAY, ONE TABLET DAILY
  3. RIVOTRIL [Concomitant]
     Dosage: 4 MG, 2X/DAY (TWO TABLETS OF 2MG DAILY)
  4. TRILEPTAL [Concomitant]
     Dosage: 1200 MG, 1X/DAY (TWO TABLETS OF 600MG DAILY)

REACTIONS (2)
  - Death [Fatal]
  - Immunodeficiency [Unknown]
